FAERS Safety Report 5217208-8 (Version None)
Quarter: 2007Q1

REPORT INFORMATION
  Report Type: 
  Country: None (occurrence: None)
  Receive Date: 20070124
  Receipt Date: 20070115
  Transmission Date: 20070707
  Serious: Yes (Death, Hospitalization)
  Sender: FDA-Public Use
  Company Number: GB-ELI_LILLY_AND_COMPANY-GBT050502100

PATIENT
  Age: 63 Year
  Sex: Male
  Weight: 62.8 kg

DRUGS (11)
  1. PEMETREXED [Suspect]
     Indication: NON-SMALL CELL LUNG CANCER
     Dosage: 825 MG, OTHER
     Route: 042
     Dates: start: 20050504
  2. FOLIC ACID [Concomitant]
     Indication: PROPHYLAXIS
     Dosage: 400 UG, UNKNOWN
     Route: 048
     Dates: start: 20050427
  3. VITAMIN B-12 [Concomitant]
     Indication: PROPHYLAXIS
     Dosage: 1000 UG, UNKNOWN
     Route: 030
     Dates: start: 20050427
  4. CO-DANTHRAMER [Concomitant]
     Indication: CONSTIPATION
     Dosage: UNK, UNKNOWN
     Dates: start: 20040915
  5. MEGESTROL ACETATE [Concomitant]
     Indication: APPETITE DISORDER
     Dosage: UNK, UNKNOWN
     Dates: start: 20040921
  6. MST [Concomitant]
     Indication: PAIN
     Dosage: UNK, UNKNOWN
     Dates: start: 20040915
  7. METOCLOPRAMIDE [Concomitant]
     Indication: NAUSEA
     Dosage: UNK, UNKNOWN
     Dates: start: 20040915
  8. ORAMORPH SR [Concomitant]
     Indication: PAIN
     Dosage: UNK, UNKNOWN
     Dates: start: 20040915
  9. LANSOPRAZOLE [Concomitant]
     Indication: GASTROOESOPHAGEAL REFLUX DISEASE
     Dosage: UNK, UNKNOWN
     Dates: start: 20040924
  10. DILTIAZEM HCL [Concomitant]
     Indication: HYPERTENSION
     Dosage: UNK, UNKNOWN
     Dates: start: 20040801
  11. WARFARIN SODIUM [Concomitant]
     Indication: DEEP VEIN THROMBOSIS
     Dosage: UNK, UNKNOWN
     Dates: start: 20040923

REACTIONS (9)
  - ACTIVATED PARTIAL THROMBOPLASTIN TIME PROLONGED [None]
  - HAEMORRHAGIC DISORDER [None]
  - HAEMOTHORAX [None]
  - INTERNATIONAL NORMALISED RATIO INCREASED [None]
  - MALIGNANT NEOPLASM PROGRESSION [None]
  - PERIPHERAL CIRCULATORY FAILURE [None]
  - PLEURAL EFFUSION [None]
  - PROTHROMBIN TIME PROLONGED [None]
  - RESPIRATORY DISTRESS [None]
